FAERS Safety Report 10010356 (Version 1)
Quarter: 2014Q1

REPORT INFORMATION
  Report Type: Spontaneous
  Country: FR (occurrence: FR)
  Receive Date: 20140314
  Receipt Date: 20140314
  Transmission Date: 20141002
  Serious: Yes (Hospitalization)
  Sender: FDA-Public Use
  Company Number: FR-UCBSA-114222

PATIENT
  Age: 55 Year
  Sex: Male

DRUGS (1)
  1. CIMZIA [Suspect]
     Indication: RHEUMATOID ARTHRITIS
     Dosage: TOTAL OF 5 INJECTION
     Route: 058
     Dates: start: 20110412, end: 20110607

REACTIONS (6)
  - Rash [Recovered/Resolved]
  - Psoas abscess [Recovered/Resolved]
  - Keratitis [Recovered/Resolved]
  - Conjunctivitis [Recovered/Resolved]
  - Arthralgia [Recovered/Resolved]
  - Cheilitis [Recovered/Resolved]
